FAERS Safety Report 11837990 (Version 4)
Quarter: 2016Q1

REPORT INFORMATION
  Report Type: Spontaneous
  Country: US (occurrence: US)
  Receive Date: 20151215
  Receipt Date: 20160128
  Transmission Date: 20160525
  Serious: Yes (Other)
  Sender: FDA-Public Use
  Company Number: US-PFIZER INC-2015148593

PATIENT
  Age: 70 Year
  Sex: Female
  Weight: 61 kg

DRUGS (5)
  1. PRILOSEC [Concomitant]
     Active Substance: OMEPRAZOLE MAGNESIUM
     Indication: GASTROOESOPHAGEAL REFLUX DISEASE
     Dosage: 20 MG, 1X/DAY
     Dates: start: 2010
  2. ZYRTEC [Concomitant]
     Active Substance: CETIRIZINE HYDROCHLORIDE
     Indication: SEASONAL ALLERGY
     Dosage: 20 MG, AS NEEDED
     Dates: start: 2015
  3. ESTRING [Suspect]
     Active Substance: ESTRADIOL
     Indication: VULVOVAGINAL DRYNESS
     Dosage: 2 MG, EVERY 3 MONTHS
     Route: 067
     Dates: start: 2013
  4. AMBIEN [Concomitant]
     Active Substance: ZOLPIDEM TARTRATE
     Indication: SLEEP DISORDER
     Dosage: UNK, AS NEEDED
  5. CELEXA [Concomitant]
     Active Substance: CITALOPRAM HYDROBROMIDE
     Indication: HORMONE LEVEL ABNORMAL
     Dosage: 20 MG, 1X/DAY
     Dates: start: 2000

REACTIONS (15)
  - Sinusitis [Unknown]
  - Product colour issue [Unknown]
  - Skin disorder [Recovered/Resolved]
  - Intentional product misuse [Recovered/Resolved]
  - Product odour abnormal [Not Recovered/Not Resolved]
  - Hot flush [Recovered/Resolved]
  - Renal disorder [Unknown]
  - Malaise [Recovered/Resolved]
  - Kidney infection [Recovered/Resolved]
  - Vaginal odour [Recovered/Resolved]
  - Poor quality drug administered [Recovered/Resolved]
  - Cystitis [Recovered/Resolved]
  - Dehydration [Unknown]
  - Mood swings [Recovered/Resolved]
  - Body temperature increased [Recovered/Resolved]

NARRATIVE: CASE EVENT DATE: 2014
